FAERS Safety Report 9844358 (Version 4)
Quarter: 2014Q2

REPORT INFORMATION
  Report Type: Spontaneous
  Country: GB (occurrence: GB)
  Receive Date: 20140127
  Receipt Date: 20140519
  Transmission Date: 20141212
  Serious: Yes (Death)
  Sender: FDA-Public Use
  Company Number: PHFR2014GB000859

PATIENT
  Age: 38 Year
  Sex: Male
  Weight: 89.6 kg

DRUGS (5)
  1. CLOZARIL [Suspect]
     Indication: SCHIZOPHRENIA
     Dosage: UNK
     Route: 048
     Dates: start: 20050616
  2. CLOZARIL [Suspect]
     Dosage: 650 MG, DAILY
     Route: 048
  3. CLOMIPRAMINE [Concomitant]
     Indication: DEPRESSED MOOD
     Dosage: 250 MG, DAILY
     Route: 048
  4. CLOMIPRAMINE [Concomitant]
     Indication: OBSESSIVE-COMPULSIVE DISORDER
  5. SODIUM VALPROATE [Concomitant]
     Indication: CONVULSION PROPHYLAXIS
     Dosage: 500 MG, DAILY
     Route: 048

REACTIONS (1)
  - Accidental death [Fatal]
